FAERS Safety Report 11058173 (Version 3)
Quarter: 2015Q2

REPORT INFORMATION
  Report Type: Spontaneous
  Country: US (occurrence: US)
  Receive Date: 20150423
  Receipt Date: 20150528
  Transmission Date: 20150821
  Serious: Yes (Other)
  Sender: FDA-Public Use
  Company Number: US-AUROBINDO-AUR-APL-2015-03344

PATIENT
  Age: 61 Year
  Sex: Male
  Weight: 75 kg

DRUGS (6)
  1. GABAPENTIN CAPSULES 300 MG [Suspect]
     Active Substance: GABAPENTIN
     Indication: TARSAL TUNNEL SYNDROME
     Dosage: 300 MG, 3 TIMES A DAY
     Route: 048
  2. GABAPENTIN CAPSULES 300 MG [Suspect]
     Active Substance: GABAPENTIN
     Indication: NERVE INJURY
  3. LYRICA [Concomitant]
     Active Substance: PREGABALIN
     Indication: NERVE INJURY
     Dosage: 75 MG, 5 TIMES A DAY
     Route: 048
     Dates: start: 201401
  4. LYRICA [Concomitant]
     Active Substance: PREGABALIN
     Indication: TARSAL TUNNEL SYNDROME
     Dosage: UNK
     Route: 065
  5. LYRICA [Concomitant]
     Active Substance: PREGABALIN
     Indication: BACK PAIN
     Dosage: 200 MG, TWO TIMES A DAY
     Route: 048
     Dates: end: 20150218
  6. GABAPENTIN CAPSULES 300 MG [Suspect]
     Active Substance: GABAPENTIN
     Indication: BACK PAIN

REACTIONS (5)
  - Pain [Recovered/Resolved]
  - Pruritus [Recovered/Resolved]
  - Loss of consciousness [Unknown]
  - Burning sensation [Recovered/Resolved]
  - Drug ineffective [Not Recovered/Not Resolved]

NARRATIVE: CASE EVENT DATE: 2015
